FAERS Safety Report 7857378 (Version 21)
Quarter: 2019Q3

REPORT INFORMATION
  Report Type: Report from Study
  Country: JP (occurrence: JP)
  Receive Date: 20110316
  Receipt Date: 20190708
  Transmission Date: 20191005
  Serious: Yes (Hospitalization)
  Sender: FDA-Public Use
  Company Number: JP-JNJFOC-20100700830

PATIENT
  Age: 35 Year
  Sex: Male
  Weight: 62 kg

DRUGS (35)
  1. ISENTRESS [Suspect]
     Active Substance: RALTEGRAVIR POTASSIUM
     Route: 048
     Dates: start: 20091229, end: 20161111
  2. KALETRA [Concomitant]
     Active Substance: LOPINAVIR\RITONAVIR
     Indication: HIV INFECTION
     Route: 048
     Dates: start: 20050113, end: 20061031
  3. AZILVA [Concomitant]
     Active Substance: AZILSARTAN KAMEDOXOMIL
     Route: 048
     Dates: start: 20130911
  4. FLUITRAN [Concomitant]
     Active Substance: TRICHLORMETHIAZIDE
     Route: 048
     Dates: start: 20150410
  5. EPZICOM [Suspect]
     Active Substance: ABACAVIR SULFATE\LAMIVUDINE
     Route: 048
     Dates: start: 20091229, end: 20161111
  6. ZYLORIC [Concomitant]
     Active Substance: ALLOPURINOL
     Indication: HYPERURICAEMIA
     Route: 048
     Dates: start: 20020709
  7. VIRACEPT [Concomitant]
     Active Substance: NELFINAVIR MESYLATE
     Indication: HIV INFECTION
     Route: 048
     Dates: start: 19990112, end: 20050112
  8. ISENTRESS [Suspect]
     Active Substance: RALTEGRAVIR POTASSIUM
     Indication: HIV INFECTION
     Route: 048
  9. CROSS EIGHT M [Concomitant]
     Active Substance: ANTIHEMOPHILIC FACTOR HUMAN
     Dosage: 1000UT 1-2 TIMES/MONTH
     Route: 042
     Dates: start: 20120224
  10. URSO [Concomitant]
     Active Substance: URSODIOL
     Indication: LIVER DISORDER
     Route: 048
     Dates: start: 20090401, end: 20110930
  11. AMLODIPINE BESILATE [Concomitant]
     Active Substance: AMLODIPINE BESYLATE
     Indication: HYPERTENSION
     Route: 048
     Dates: start: 20110304, end: 20110930
  12. CALBLOCK [Concomitant]
     Active Substance: AZELNIDIPINE
     Indication: HYPERTENSION
     Route: 048
     Dates: start: 20111221, end: 20120116
  13. EPZICOM [Suspect]
     Active Substance: ABACAVIR SULFATE\LAMIVUDINE
     Indication: HIV INFECTION
     Route: 048
  14. TRIUMEQ [Suspect]
     Active Substance: ABACAVIR SULFATE\DOLUTEGRAVIR SODIUM\LAMIVUDINE
     Indication: HIV INFECTION
     Route: 048
     Dates: start: 20161112
  15. CROSS EIGHT M [Concomitant]
     Active Substance: ANTIHEMOPHILIC FACTOR HUMAN
     Indication: FACTOR VIII DEFICIENCY
     Route: 042
     Dates: start: 20090401, end: 20111220
  16. ECARD [Concomitant]
     Active Substance: CANDESARTAN CILEXETIL\HYDROCHLOROTHIAZIDE
     Route: 048
     Dates: start: 20111104, end: 20130910
  17. PIBRENTASVIR [Concomitant]
     Active Substance: PIBRENTASVIR
     Route: 048
     Dates: start: 20171208, end: 20180301
  18. ETRAVIRINE [Suspect]
     Active Substance: ETRAVIRINE
     Route: 048
     Dates: start: 20091229, end: 20161111
  19. VIREAD [Concomitant]
     Active Substance: TENOFOVIR DISOPROXIL FUMARATE
     Indication: HIV INFECTION
     Route: 048
     Dates: start: 20041118, end: 20091228
  20. PEGINTERFERON ALFA-2A. [Concomitant]
     Active Substance: PEGINTERFERON ALFA-2A
     Route: 058
     Dates: start: 20120921, end: 20171127
  21. CROSS EIGHT M [Concomitant]
     Active Substance: ANTIHEMOPHILIC FACTOR HUMAN
     Dosage: 1000UT SEVERAL TIMES/MONTH
     Route: 042
     Dates: start: 20110401, end: 20111220
  22. CROSS EIGHT M [Concomitant]
     Active Substance: ANTIHEMOPHILIC FACTOR HUMAN
     Route: 042
  23. EPIVIR [Concomitant]
     Active Substance: LAMIVUDINE
     Indication: HIV INFECTION
     Route: 048
     Dates: start: 19990112, end: 20091228
  24. PEGINTERFERON ALFA-2A. [Concomitant]
     Active Substance: PEGINTERFERON ALFA-2A
     Route: 058
     Dates: start: 20120529, end: 20120920
  25. FAMOTIDINE. [Concomitant]
     Active Substance: FAMOTIDINE
     Route: 048
     Dates: start: 20180302
  26. ETRAVIRINE [Suspect]
     Active Substance: ETRAVIRINE
     Indication: HIV INFECTION
     Route: 048
  27. RILPIVIRINE [Suspect]
     Active Substance: RILPIVIRINE
     Indication: HIV INFECTION
     Route: 048
     Dates: start: 20161112
  28. PEGINTERFERON ALFA-2A. [Concomitant]
     Active Substance: PEGINTERFERON ALFA-2A
     Indication: HEPATITIS
     Route: 058
     Dates: start: 20090401, end: 20120528
  29. KALETRA [Concomitant]
     Active Substance: LOPINAVIR\RITONAVIR
     Route: 048
     Dates: start: 20061101, end: 20091228
  30. URSO [Concomitant]
     Active Substance: URSODIOL
     Route: 048
     Dates: start: 20111221
  31. AMLODIPINE BESILATE [Concomitant]
     Active Substance: AMLODIPINE BESYLATE
     Route: 048
     Dates: start: 20120119
  32. BLOPRESS [Concomitant]
     Active Substance: CANDESARTAN CILEXETIL
     Indication: HYPERTENSION
     Route: 048
     Dates: start: 200301, end: 20100304
  33. BLOPRESS [Concomitant]
     Active Substance: CANDESARTAN CILEXETIL
     Route: 048
     Dates: start: 20100305, end: 20111109
  34. ZERIT [Concomitant]
     Active Substance: STAVUDINE
     Indication: HIV INFECTION
     Dosage: SANILVUDINE
     Route: 048
     Dates: start: 19990112, end: 20041117
  35. ARTIST [Concomitant]
     Active Substance: CARVEDILOL
     Route: 048
     Dates: start: 20160212

REACTIONS (5)
  - Osteoporosis [Not Recovered/Not Resolved]
  - Hyperuricaemia [Not Recovered/Not Resolved]
  - Beta 2 microglobulin urine increased [Unknown]
  - Liver disorder [Not Recovered/Not Resolved]
  - Haemorrhagic diathesis [Recovered/Resolved]

NARRATIVE: CASE EVENT DATE: 20100122
